FAERS Safety Report 13191430 (Version 1)
Quarter: 2017Q1

REPORT INFORMATION
  Report Type: Report from Study
  Country: US (occurrence: US)
  Receive Date: 20170207
  Receipt Date: 20170207
  Transmission Date: 20170428
  Serious: Yes (Life-Threatening, Other)
  Sender: FDA-Public Use
  Company Number: US-BRISTOL-MYERS SQUIBB COMPANY-BMS-2014-008198

PATIENT
  Age: 11 Year
  Sex: Male
  Weight: 55.3 kg

DRUGS (4)
  1. BLINDED PLACEBO [Suspect]
     Active Substance: INVESTIGATIONAL PRODUCT
     Indication: GRAFT VERSUS HOST DISEASE
     Dosage: 599 MG, UNK
     Route: 042
     Dates: start: 20140422
  2. BLINDED ABATACEPT [Suspect]
     Active Substance: ABATACEPT
     Indication: GRAFT VERSUS HOST DISEASE
     Dosage: 599 MG, UNK
     Route: 042
     Dates: start: 20140422
  3. BLINDED ABATACEPT [Suspect]
     Active Substance: ABATACEPT
     Indication: PRODUCT USED FOR UNKNOWN INDICATION
     Dosage: 599 MG, UNK
     Route: 042
     Dates: start: 20140428
  4. BLINDED PLACEBO [Suspect]
     Active Substance: INVESTIGATIONAL PRODUCT
     Indication: PRODUCT USED FOR UNKNOWN INDICATION
     Dosage: 599 MG, UNK
     Route: 042
     Dates: start: 20140428

REACTIONS (1)
  - Device related infection [Recovered/Resolved with Sequelae]

NARRATIVE: CASE EVENT DATE: 20140503
